FAERS Safety Report 4842666-8 (Version None)
Quarter: 2005Q4

REPORT INFORMATION
  Report Type: 
  Country: None (occurrence: None)
  Receive Date: 20051201
  Receipt Date: 20051124
  Transmission Date: 20060501
  Serious: Yes (Hospitalization)
  Sender: FDA-Public Use
  Company Number: AU-BOEHRINGER INGELHEIM PHARMACEUTICALS, INC.-2005-BP-20660AU

PATIENT
  Age: 58 Year
  Sex: Female
  Weight: 60 kg

DRUGS (5)
  1. MICARDIS HCT [Suspect]
     Dosage: 40/12.5
     Route: 048
  2. LIPEX [Suspect]
     Route: 048
     Dates: start: 20050622, end: 20050704
  3. SOMAC [Concomitant]
     Route: 048
  4. CARTIA (ASPIRIN) [Concomitant]
     Route: 048
  5. AMITRIPTYLINE HCL [Concomitant]
     Route: 048

REACTIONS (4)
  - ACUTE MYOCARDIAL INFARCTION [None]
  - BLOOD CREATININE INCREASED [None]
  - CHEST PAIN [None]
  - LIVER FUNCTION TEST ABNORMAL [None]
